FAERS Safety Report 24603262 (Version 4)
Quarter: 2025Q4

REPORT INFORMATION
  Report Type: Spontaneous
  Country: US (occurrence: US)
  Receive Date: 20241111
  Receipt Date: 20251210
  Transmission Date: 20260118
  Serious: Yes (Other)
  Sender: CSL BEHRING
  Company Number: US-BEH-2024183682

PATIENT
  Age: 20 Year
  Sex: Male

DRUGS (13)
  1. IDELVION [Suspect]
     Active Substance: COAGULATION FACTOR IX RECOMBINANT HUMAN
     Indication: Factor IX deficiency
     Dosage: 6700 IU, QOW (EVERY 14 DAYS)
     Route: 042
     Dates: start: 202407
  2. IDELVION [Suspect]
     Active Substance: COAGULATION FACTOR IX RECOMBINANT HUMAN
     Indication: Factor IX deficiency
     Dosage: 6700 IU, QOW (EVERY 14 DAYS)
     Route: 042
     Dates: start: 202407
  3. IDELVION [Suspect]
     Active Substance: COAGULATION FACTOR IX RECOMBINANT HUMAN
     Dosage: 2000 IU, QOW (EVERY 14 DAYS)
     Route: 042
     Dates: start: 202407
  4. IDELVION [Suspect]
     Active Substance: COAGULATION FACTOR IX RECOMBINANT HUMAN
     Dosage: 2000 IU, QOW (EVERY 14 DAYS)
     Route: 042
     Dates: start: 202407
  5. IDELVION [Suspect]
     Active Substance: COAGULATION FACTOR IX RECOMBINANT HUMAN
     Dosage: 1200 IU, QOW (EVERY 14 DAYS)
     Route: 042
     Dates: start: 202407
  6. IDELVION [Suspect]
     Active Substance: COAGULATION FACTOR IX RECOMBINANT HUMAN
     Dosage: 1200 IU, QOW (EVERY 14 DAYS)
     Route: 042
     Dates: start: 202407
  7. IDELVION [Suspect]
     Active Substance: COAGULATION FACTOR IX RECOMBINANT HUMAN
     Dosage: 200 IU, QOW(EVERY 14 DAYS)
     Route: 042
     Dates: start: 202407
  8. IDELVION [Suspect]
     Active Substance: COAGULATION FACTOR IX RECOMBINANT HUMAN
     Dosage: 200 IU, QOW(EVERY 14 DAYS)
     Route: 042
     Dates: start: 202407
  9. IDELVION [Suspect]
     Active Substance: COAGULATION FACTOR IX RECOMBINANT HUMAN
     Indication: Factor IX deficiency
     Dosage: 6700 IU, QOW (EVERY 14 DAYS)
     Route: 042
     Dates: start: 202407
  10. IDELVION [Suspect]
     Active Substance: COAGULATION FACTOR IX RECOMBINANT HUMAN
     Indication: Factor IX deficiency
     Dosage: 6700 IU, QOW (EVERY 14 DAYS)
     Route: 042
     Dates: start: 202407
  11. IDELVION [Suspect]
     Active Substance: COAGULATION FACTOR IX RECOMBINANT HUMAN
     Dosage: 3500 IU, QOW (EVERY 14 DAYS)
     Route: 042
     Dates: start: 202407
  12. IDELVION [Suspect]
     Active Substance: COAGULATION FACTOR IX RECOMBINANT HUMAN
     Dosage: 3500 IU, QOW (EVERY 14 DAYS)
     Route: 042
     Dates: start: 202407
  13. SODIUM CHLORIDE [Concomitant]
     Active Substance: SODIUM CHLORIDE

REACTIONS (7)
  - Haemarthrosis [Recovered/Resolved]
  - Haemarthrosis [Unknown]
  - Haemarthrosis [Unknown]
  - Haemarthrosis [Unknown]
  - Wisdom teeth removal [Unknown]
  - Post procedural haemorrhage [Unknown]
  - Ligament sprain [Unknown]

NARRATIVE: CASE EVENT DATE: 20241019
